FAERS Safety Report 4816259-2 (Version None)
Quarter: 2005Q4

REPORT INFORMATION
  Report Type: 
  Country: None (occurrence: None)
  Receive Date: 20051026
  Receipt Date: 20051010
  Transmission Date: 20060501
  Serious: Yes (Congenital Anomaly)
  Sender: FDA-Public Use
  Company Number: 8012668

PATIENT

DRUGS (2)
  1. LEVETIRACETAM [Suspect]
     Dosage: TRP
  2. TOPAMAX [Suspect]
     Dosage: TRP

REACTIONS (2)
  - DIGEORGE'S SYNDROME [None]
  - DRUG EXPOSURE DURING PREGNANCY [None]
